FAERS Safety Report 23646956 (Version 1)
Quarter: 2024Q1

REPORT INFORMATION
  Report Type: Spontaneous
  Country: IL (occurrence: IL)
  Receive Date: 20240319
  Receipt Date: 20240319
  Transmission Date: 20240409
  Serious: Yes (Death)
  Sender: FDA-Public Use
  Company Number: IL-AMGEN-ISRSL2024038535

PATIENT
  Age: 85 Year
  Sex: Female

DRUGS (1)
  1. NPLATE [Suspect]
     Active Substance: ROMIPLOSTIM
     Indication: Immune thrombocytopenia
     Dosage: UNK, QWK
     Route: 065

REACTIONS (2)
  - Productive cough [Fatal]
  - Dysarthria [Unknown]
